FAERS Safety Report 17589437 (Version 1)
Quarter: 2020Q1

REPORT INFORMATION
  Report Type: Report from Study
  Country: None (occurrence: CA)
  Receive Date: 20200327
  Receipt Date: 20200327
  Transmission Date: 20200409
  Serious: Yes (Other)
  Sender: FDA-Public Use
  Company Number: CA-ABBVIE-20K-028-3335366-00

PATIENT
  Sex: Female

DRUGS (1)
  1. HUMIRA [Suspect]
     Active Substance: ADALIMUMAB
     Indication: ANKYLOSING SPONDYLITIS
     Route: 058
     Dates: start: 20171117, end: 202002

REACTIONS (3)
  - Psoriatic arthropathy [Not Recovered/Not Resolved]
  - Organ failure [Not Recovered/Not Resolved]
  - Drug ineffective [Not Recovered/Not Resolved]
